FAERS Safety Report 5449725-X (Version None)
Quarter: 2007Q3

REPORT INFORMATION
  Report Type: 
  Country: None (occurrence: None)
  Receive Date: 20070910
  Receipt Date: 20070828
  Transmission Date: 20080115
  Serious: Yes (Hospitalization)
  Sender: FDA-Public Use
  Company Number: 2006P1000250

PATIENT
  Age: 58 Year
  Sex: Female
  Weight: 55 kg

DRUGS (11)
  1. PLACEBO (PLACEBO) [Suspect]
     Indication: ACUTE MYOCARDIAL INFARCTION
     Dosage: 5 IU;X1;IV; 0.25 MG/KG;X1;IV
     Route: 042
     Dates: start: 20050310
  2. PLACEBO (PLACEBO) [Suspect]
     Indication: ACUTE MYOCARDIAL INFARCTION
     Dosage: 5 IU;X1;IV; 0.25 MG/KG;X1;IV
     Route: 042
     Dates: start: 20050310
  3. ABCIXIMAB (ABCIXIMAB) [Suspect]
     Indication: ACUTE MYOCARDIAL INFARCTION
     Dosage: 7 MG;X1;IV; 50 MG;X1;IV
     Route: 042
     Dates: start: 20060310
  4. ABCIXIMAB (ABCIXIMAB) [Suspect]
     Indication: ACUTE MYOCARDIAL INFARCTION
     Dosage: 7 MG;X1;IV; 50 MG;X1;IV
     Route: 042
     Dates: start: 20060310
  5. CLOPIDOGREL [Concomitant]
  6. RAMIPRIL [Concomitant]
  7. OMEPRAZOLE [Concomitant]
  8. SIMVASTATIN [Concomitant]
  9. BISOPROLOL [Concomitant]
  10. ASPIRIN [Concomitant]
  11. LANSOPRAZOLE [Concomitant]

REACTIONS (5)
  - ABDOMINAL PAIN UPPER [None]
  - DYSPNOEA [None]
  - GASTROOESOPHAGEAL REFLUX DISEASE [None]
  - HYPERHIDROSIS [None]
  - THERAPEUTIC RESPONSE DECREASED [None]
